FAERS Safety Report 11333900 (Version 3)
Quarter: 2016Q1

REPORT INFORMATION
  Report Type: Spontaneous
  Country: US (occurrence: US)
  Receive Date: 20150803
  Receipt Date: 20160111
  Transmission Date: 20160525
  Serious: No
  Sender: FDA-Public Use
  Company Number: US-PFIZER INC-2015253973

PATIENT
  Age: 58 Year
  Sex: Female
  Weight: 90.72 kg

DRUGS (3)
  1. LYRICA [Suspect]
     Active Substance: PREGABALIN
     Indication: MULTIPLE SCLEROSIS
     Dosage: 250 MG, DAILY (100 MG MORNING, 100MG AFTERNOON, 50 MG BEDTIME)
     Dates: start: 2005
  2. TECFIDERA [Concomitant]
     Active Substance: DIMETHYL FUMARATE
     Indication: MULTIPLE SCLEROSIS
     Dosage: 240 UNK, 2X/DAY
     Dates: start: 20130801
  3. BACLOFEN. [Concomitant]
     Active Substance: BACLOFEN
     Indication: MULTIPLE SCLEROSIS
     Dosage: 10 MG, 1X/DAY (AT BEDTIME)

REACTIONS (5)
  - Pain [Recovered/Resolved]
  - Fatigue [Recovered/Resolved]
  - Condition aggravated [Recovered/Resolved]
  - Mental disorder [Recovered/Resolved]
  - Dizziness [Recovered/Resolved]
